FAERS Safety Report 5413315-5 (Version None)
Quarter: 2007Q3

REPORT INFORMATION
  Report Type: 
  Country: None (occurrence: None)
  Receive Date: 20070810
  Receipt Date: 20070731
  Transmission Date: 20080115
  Serious: Yes (Other)
  Sender: FDA-Public Use
  Company Number: A-CH2007-17205

PATIENT
  Age: 54 Year
  Sex: Female

DRUGS (1)
  1. TRACLEER [Suspect]
     Indication: PULMONARY HYPERTENSION
     Dosage: 135 MG, QD, ORAL; 65 MG, QD, ORAL
     Route: 048

REACTIONS (2)
  - GRANULOCYTOPENIA [None]
  - WHITE BLOOD CELL COUNT DECREASED [None]
